FAERS Safety Report 5158242-6 (Version None)
Quarter: 2006Q4

REPORT INFORMATION
  Report Type: 
  Country: None (occurrence: None)
  Receive Date: 20061128
  Receipt Date: 20061117
  Transmission Date: 20070319
  Serious: Yes (Other)
  Sender: FDA-Public Use
  Company Number: ES-JNJFOC-20061104567

PATIENT
  Age: 61 Year

DRUGS (1)
  1. REMICADE [Suspect]
     Indication: CROHN'S DISEASE
     Dosage: 5 INFUSIONS (MAINTENANCE PHASE)
     Route: 042

REACTIONS (1)
  - DISSEMINATED TUBERCULOSIS [None]
